FAERS Safety Report 7574539-4 (Version None)
Quarter: 2011Q2

REPORT INFORMATION
  Report Type: 
  Country: None (occurrence: None)
  Receive Date: 20110621
  Receipt Date: 20110615
  Transmission Date: 20111010
  Serious: Yes (Hospitalization)
  Sender: FDA-Public Use
  Company Number: 0742161737 2011 0001

PATIENT
  Age: 52 Year
  Sex: Male
  Weight: 84.8226 kg

DRUGS (2)
  1. BEVACIZUMAB [Suspect]
     Indication: GLIOBLASTOMA MULTIFORME
     Dosage: 10 MG / KG
     Dates: start: 20110321, end: 20110401
  2. TEMOZOLOMIDE [Concomitant]

REACTIONS (4)
  - MENTAL STATUS CHANGES [None]
  - CONFUSIONAL STATE [None]
  - MENINGITIS [None]
  - HEADACHE [None]
